FAERS Safety Report 5384940-5 (Version None)
Quarter: 2007Q3

REPORT INFORMATION
  Report Type: 
  Country: None (occurrence: None)
  Receive Date: 20070709
  Receipt Date: 20070626
  Transmission Date: 20080115
  Serious: Yes (Hospitalization)
  Sender: FDA-Public Use
  Company Number: 235278K07USA

PATIENT
  Age: 39 Year
  Sex: Female

DRUGS (1)
  1. REBIF [Suspect]
     Indication: MULTIPLE SCLEROSIS
     Dosage: 33 MCG, 3 IN 1 WEEKS, SUBCUTANEOUS
     Route: 058
     Dates: start: 20061018

REACTIONS (6)
  - CHROMATURIA [None]
  - CONDITION AGGRAVATED [None]
  - MOBILITY DECREASED [None]
  - MULTIPLE SCLEROSIS [None]
  - POLLAKIURIA [None]
  - URINARY TRACT INFECTION [None]
